FAERS Safety Report 12758995 (Version 1)
Quarter: 2016Q3

REPORT INFORMATION
  Report Type: Spontaneous
  Country: US (occurrence: US)
  Receive Date: 20160919
  Receipt Date: 20160919
  Transmission Date: 20161109
  Serious: Yes (Hospitalization, Disabling)
  Sender: FDA-Public Use
  Company Number: None

PATIENT
  Age: 31 Year
  Sex: Male
  Weight: 78.75 kg

DRUGS (5)
  1. PREDNISONE. [Concomitant]
     Active Substance: PREDNISONE
  2. BUTALBITAL/ACETAMINOPHEN/CAFF [Concomitant]
  3. CIPROFLOXACIN. [Suspect]
     Active Substance: CIPROFLOXACIN
     Indication: PROSTATE INFECTION
     Route: 048
     Dates: start: 20160815, end: 20160827
  4. MECLIZINE HYDROCHORIDE [Concomitant]
  5. PROMETHAZINE HCL [Concomitant]
     Active Substance: PROMETHAZINE HYDROCHLORIDE

REACTIONS (9)
  - Speech disorder [None]
  - Nerve injury [None]
  - Loss of consciousness [None]
  - Somnolence [None]
  - Impaired driving ability [None]
  - Migraine with aura [None]
  - Migraine [None]
  - Visual impairment [None]
  - Activities of daily living impaired [None]

NARRATIVE: CASE EVENT DATE: 20160828
